FAERS Safety Report 11316304 (Version 1)
Quarter: 2015Q3

REPORT INFORMATION
  Report Type: Spontaneous
  Country: US (occurrence: None)
  Receive Date: 20150727
  Receipt Date: 20150727
  Transmission Date: 20151125
  Serious: Yes (Hospitalization)
  Sender: FDA-Public Use
  Company Number: None

PATIENT
  Age: 12 Year
  Sex: Male
  Weight: 49.4 kg

DRUGS (17)
  1. DIPHENHYDRAMINE. [Concomitant]
     Active Substance: DIPHENHYDRAMINE
  2. DOCUSATE [Concomitant]
     Active Substance: DOCUSATE
  3. FLUCONAZOLE. [Concomitant]
     Active Substance: FLUCONAZOLE
  4. OLANZAPINE. [Concomitant]
     Active Substance: OLANZAPINE
  5. VINCRISTINE SULFATE. [Suspect]
     Active Substance: VINCRISTINE SULFATE
     Dates: end: 20150604
  6. METOCLOPRAMIDE. [Concomitant]
     Active Substance: METOCLOPRAMIDE
  7. POLYETHYLENE GLYCOL [Concomitant]
     Active Substance: POLYETHYLENE GLYCOLS
  8. APREPITANT. [Concomitant]
     Active Substance: APREPITANT
  9. CISPLATIN. [Suspect]
     Active Substance: CISPLATIN
     Dates: end: 20150604
  10. HYDROCODONE BITARTRATE AND ACETAMINOPHEN [Concomitant]
     Active Substance: ACETAMINOPHEN\HYDROCODONE BITARTRATE
  11. DRONABINOL. [Concomitant]
     Active Substance: DRONABINOL
  12. LORAZEPAM. [Concomitant]
     Active Substance: LORAZEPAM
  13. SENNA [Concomitant]
     Active Substance: SENNA LEAF\SENNOSIDES\SENNOSIDES A AND B
  14. ACETAMINOPHEN. [Concomitant]
     Active Substance: ACETAMINOPHEN
  15. GRANISETRON [Concomitant]
     Active Substance: GRANISETRON
  16. CYCLOPHOSPHAMIDE. [Suspect]
     Active Substance: CYCLOPHOSPHAMIDE
     Dates: end: 20150606
  17. SCOPOLAMINE [Concomitant]
     Active Substance: SCOPOLAMINE

REACTIONS (2)
  - Cholelithiasis [None]
  - Pancreatitis [None]

NARRATIVE: CASE EVENT DATE: 20150715
